FAERS Safety Report 4369860-7 (Version None)
Quarter: 2004Q2

REPORT INFORMATION
  Report Type: 
  Country: None (occurrence: None)
  Receive Date: 20040527
  Receipt Date: 20040511
  Transmission Date: 20050107
  Serious: Yes (Death)
  Sender: FDA-Public Use
  Company Number: FR_040504098

PATIENT
  Age: 50 Year
  Sex: Female

DRUGS (4)
  1. XIGRIS [Suspect]
     Indication: SEPSIS
  2. TAZOCILLINE [Concomitant]
  3. AMIKACIN [Concomitant]
  4. FLUCONAZOLE [Concomitant]
     Route: 042

REACTIONS (2)
  - BRAIN OEDEMA [None]
  - HAEMORRHAGE [None]
